FAERS Safety Report 21797133 (Version 1)
Quarter: 2022Q4

REPORT INFORMATION
  Report Type: Spontaneous
  Country: CA (occurrence: CA)
  Receive Date: 20221230
  Receipt Date: 20221230
  Transmission Date: 20230112
  Serious: Yes (Other)
  Sender: FDA-Public Use
  Company Number: CA-STRIDES ARCOLAB LIMITED-2022SP017488

PATIENT
  Age: 74 Year
  Sex: Female

DRUGS (1)
  1. METRONIDAZOLE [Suspect]
     Active Substance: METRONIDAZOLE
     Indication: Colitis ulcerative
     Dosage: UNK
     Route: 065

REACTIONS (3)
  - Nystagmus [Recovered/Resolved]
  - Neurotoxicity [Recovered/Resolved]
  - Off label use [Unknown]
